FAERS Safety Report 8801348 (Version 2)
Quarter: 2015Q1

REPORT INFORMATION
  Report Type: Report from Study
  Country: US (occurrence: US)
  Receive Date: 20120921
  Receipt Date: 20150304
  Transmission Date: 20150721
  Serious: Yes (Death)
  Sender: FDA-Public Use
  Company Number: US-ROCHE-1096208

PATIENT
  Age: 64 Year
  Sex: Female

DRUGS (8)
  1. OXALIPLATIN. [Concomitant]
     Active Substance: OXALIPLATIN
     Route: 065
     Dates: start: 20040505
  2. AVASTIN [Suspect]
     Active Substance: BEVACIZUMAB
     Indication: ANAL CANCER
  3. LEVAQUIN [Concomitant]
     Active Substance: LEVOFLOXACIN
  4. ADVIL [Concomitant]
     Active Substance: IBUPROFEN
  5. AVASTIN [Suspect]
     Active Substance: BEVACIZUMAB
     Indication: RECTOSIGMOID CANCER
     Route: 042
     Dates: start: 20040712
  6. XELODA [Suspect]
     Active Substance: CAPECITABINE
     Indication: RECTOSIGMOID CANCER
     Route: 065
     Dates: start: 20040505
  7. XELODA [Suspect]
     Active Substance: CAPECITABINE
     Indication: ANAL CANCER
  8. TYLENOL [Concomitant]
     Active Substance: ACETAMINOPHEN

REACTIONS (14)
  - Blood pressure increased [Unknown]
  - Pyrexia [Recovered/Resolved]
  - Musculoskeletal discomfort [Unknown]
  - Colon cancer metastatic [Unknown]
  - Abdominal discomfort [Unknown]
  - Death [Fatal]
  - Haemorrhoids [Recovering/Resolving]
  - Pelvic discomfort [Unknown]
  - Lymphadenopathy [Unknown]
  - Cystitis [Unknown]
  - Nodule [Unknown]
  - Abdominal pain [Unknown]
  - Decreased appetite [Unknown]
  - Neuropathy peripheral [Unknown]

NARRATIVE: CASE EVENT DATE: 20041226
